FAERS Safety Report 23178636 (Version 1)
Quarter: 2023Q4

REPORT INFORMATION
  Report Type: Spontaneous
  Country: US (occurrence: None)
  Receive Date: 20231112
  Receipt Date: 20231112
  Transmission Date: 20240109
  Serious: Yes (Other)
  Sender: FDA-Public Use
  Company Number: None

PATIENT
  Age: 6 Year
  Sex: Male
  Weight: 18.8 kg

DRUGS (1)
  1. PENTAMIDINE [Suspect]
     Active Substance: PENTAMIDINE
     Indication: Chemotherapy
     Dosage: FREQUENCY : ONCE;?
     Route: 042
     Dates: start: 20231023, end: 20231024

REACTIONS (6)
  - Pain in extremity [None]
  - Muscle spasms [None]
  - Heart rate increased [None]
  - Blood pressure increased [None]
  - Discomfort [None]
  - Dyspnoea [None]

NARRATIVE: CASE EVENT DATE: 20231023
